FAERS Safety Report 17158516 (Version 2)
Quarter: 2020Q1

REPORT INFORMATION
  Report Type: Spontaneous
  Country: US (occurrence: US)
  Receive Date: 20191216
  Receipt Date: 20200103
  Transmission Date: 20200409
  Serious: No
  Sender: FDA-Public Use
  Company Number: US-PFIZER INC-2019539473

PATIENT
  Sex: Female

DRUGS (2)
  1. PREMPRO [Suspect]
     Active Substance: ESTROGENS, CONJUGATED\MEDROXYPROGESTERONE ACETATE
     Dosage: UNK(0.3MG/1.5MGX2/SHE DOUBLES UP. SHE TAKES TWO)
  2. PREMPRO [Suspect]
     Active Substance: ESTROGENS, CONJUGATED\MEDROXYPROGESTERONE ACETATE
     Dosage: UNK(0.625MG/2.5MG)

REACTIONS (3)
  - Hot flush [Unknown]
  - Nervousness [Unknown]
  - Intentional product use issue [Unknown]
